FAERS Safety Report 7540664-7 (Version None)
Quarter: 2011Q2

REPORT INFORMATION
  Report Type: 
  Country: None (occurrence: None)
  Receive Date: 20110610
  Receipt Date: 20110606
  Transmission Date: 20111010
  Serious: Yes (Life-Threatening, Hospitalization)
  Sender: FDA-Public Use
  Company Number: PHHY2011CA31042

PATIENT
  Sex: Male

DRUGS (13)
  1. LEUCOVORIN CALCIUM [Suspect]
     Indication: COLORECTAL CANCER METASTATIC
     Dosage: 400 MG/M2
     Route: 042
     Dates: start: 20101214
  2. RABEPRAZOLE SODIUM [Concomitant]
     Dosage: UNK UKN, UNK
  3. DIAMICRON [Concomitant]
     Dosage: UNK UKN, UNK
     Dates: start: 20101206
  4. FLUOROURACIL [Suspect]
     Dosage: 2400 MG/M2 (4056 MG/M2) OVER NEXT 46 HOUR
     Dates: start: 20101214
  5. FLUOROURACIL [Suspect]
     Dosage: 1920 MG/M2
     Dates: start: 20110113
  6. OXALIPLATIN [Suspect]
     Indication: COLORECTAL CANCER METASTATIC
     Dosage: 65 MG/M2,
     Route: 042
     Dates: start: 20101214
  7. CALCIUM W/MAGNESIUM [Concomitant]
     Dosage: UNK UKN, UNK
  8. BENYLIN [Concomitant]
     Dosage: UNK UKN, UNK
     Dates: start: 20101129
  9. METFORMIN HCL [Concomitant]
     Dosage: UNK UKN, UNK
     Dates: start: 20101206
  10. FLUOROURACIL [Suspect]
     Indication: COLORECTAL CANCER METASTATIC
     Dosage: 400 MG/M2, ON DAY 1
     Route: 042
     Dates: start: 20101214
  11. VFGFR1 [Suspect]
     Indication: COLORECTAL CANCER METASTATIC
     Dosage: 12 MG/KG, UNK
     Route: 042
  12. FLUOROURACIL [Suspect]
     Dosage: 320 MG/M2
     Route: 042
     Dates: start: 20110113
  13. OXALIPLATIN [Suspect]
     Dosage: UNK
     Dates: start: 20110113

REACTIONS (4)
  - NAUSEA [None]
  - DEHYDRATION [None]
  - DIABETIC KETOACIDOSIS [None]
  - VOMITING [None]
